FAERS Safety Report 6993990-4 (Version None)
Quarter: 2010Q3

REPORT INFORMATION
  Report Type: 
  Country: None (occurrence: None)
  Receive Date: 20100917
  Receipt Date: 20091231
  Transmission Date: 20110219
  Serious: Yes (Other)
  Sender: FDA-Public Use
  Company Number: US-ASTRAZENECA-2009SE24611

PATIENT
  Age: 14147 Day
  Sex: Female
  Weight: 102.1 kg

DRUGS (26)
  1. SEROQUEL XR [Suspect]
     Indication: DEPRESSION
     Route: 048
     Dates: start: 20090401, end: 20091001
  2. SEROQUEL XR [Suspect]
     Indication: ANXIETY
     Route: 048
     Dates: start: 20090401, end: 20091001
  3. SEROQUEL XR [Suspect]
     Indication: INSOMNIA
     Route: 048
     Dates: start: 20090401, end: 20091001
  4. SEROQUEL XR [Suspect]
     Indication: SUICIDAL BEHAVIOUR
     Route: 048
     Dates: start: 20090401, end: 20091001
  5. SEROQUEL XR [Suspect]
     Indication: JUDGEMENT IMPAIRED
     Route: 048
     Dates: start: 20090401, end: 20091001
  6. SEROQUEL XR [Suspect]
     Route: 048
     Dates: start: 20090401, end: 20091001
  7. SEROQUEL XR [Suspect]
     Route: 048
     Dates: start: 20090401, end: 20091001
  8. SEROQUEL XR [Suspect]
     Route: 048
     Dates: start: 20090401, end: 20091001
  9. SEROQUEL XR [Suspect]
     Route: 048
     Dates: start: 20090401, end: 20091001
  10. SEROQUEL XR [Suspect]
     Route: 048
     Dates: start: 20090401, end: 20091001
  11. SEROQUEL XR [Suspect]
     Route: 048
     Dates: start: 20091014, end: 20091214
  12. SEROQUEL XR [Suspect]
     Route: 048
     Dates: start: 20091014, end: 20091214
  13. SEROQUEL XR [Suspect]
     Route: 048
     Dates: start: 20091014, end: 20091214
  14. SEROQUEL XR [Suspect]
     Route: 048
     Dates: start: 20091014, end: 20091214
  15. SEROQUEL XR [Suspect]
     Route: 048
     Dates: start: 20091014, end: 20091214
  16. EFFEXOR [Concomitant]
     Indication: DEPRESSION
     Route: 048
     Dates: start: 20090520, end: 20091014
  17. EFFEXOR [Concomitant]
     Indication: ANXIETY
     Route: 048
     Dates: start: 20090520, end: 20091014
  18. PRISTIQ [Concomitant]
     Indication: DEPRESSION
     Route: 048
     Dates: start: 20091014
  19. PRISTIQ [Concomitant]
     Indication: ANXIETY
     Route: 048
     Dates: start: 20091014
  20. TRAZODONE HCL [Concomitant]
     Indication: INSOMNIA
     Route: 048
     Dates: start: 20091105
  21. TRAZODONE HCL [Concomitant]
     Route: 048
     Dates: start: 20090225, end: 20090401
  22. CELEXA [Concomitant]
     Dates: start: 20090225, end: 20090520
  23. ORAL CONTRACEPTIVES [Concomitant]
     Route: 048
     Dates: start: 20090715, end: 20090801
  24. SYMBICORT [Concomitant]
  25. ALBUTEROL [Concomitant]
  26. SINGULAIR [Concomitant]

REACTIONS (4)
  - INSOMNIA [None]
  - MOOD ALTERED [None]
  - SUICIDAL IDEATION [None]
  - WEIGHT INCREASED [None]
